FAERS Safety Report 24717360 (Version 3)
Quarter: 2025Q1

REPORT INFORMATION
  Report Type: Spontaneous
  Country: JP (occurrence: JP)
  Receive Date: 20241210
  Receipt Date: 20250108
  Transmission Date: 20250408
  Serious: No
  Sender: CATALYST PHARMA
  Company Number: JP-CATALYSTPHARMACEUTICALPARTNERS-JP-CATA-24-01495

PATIENT
  Age: 80 Year
  Sex: Female

DRUGS (2)
  1. FYCOMPA [Interacting]
     Active Substance: PERAMPANEL
     Indication: Prophylaxis
     Dosage: (4 MILLIGRAM(S), IN 1 DAY)
     Route: 048
     Dates: start: 2024
  2. DAYVIGO [Interacting]
     Active Substance: LEMBOREXANT
     Indication: Insomnia
     Dosage: 5.0 MILLIGRAM(S) (5 MILLIGRAM(S), 1 IN 1 DAY)
     Route: 048
     Dates: start: 2024, end: 20241127

REACTIONS (4)
  - Tremor [Unknown]
  - Feeling abnormal [Unknown]
  - Drug interaction [Unknown]
  - Off label use [Unknown]

NARRATIVE: CASE EVENT DATE: 20240101
